FAERS Safety Report 7370517-9 (Version None)
Quarter: 2011Q1

REPORT INFORMATION
  Report Type: 
  Country: None (occurrence: None)
  Receive Date: 20110323
  Receipt Date: 20110318
  Transmission Date: 20110831
  Serious: Yes (Hospitalization, Other)
  Sender: FDA-Public Use
  Company Number: DK-ABBOTT-10P-044-0634773-00

PATIENT
  Sex: Male
  Weight: 122 kg

DRUGS (1)
  1. REDUCTIL 15MG [Suspect]
     Indication: OBESITY
     Route: 048
     Dates: start: 20070907, end: 20100212

REACTIONS (9)
  - HYPERHIDROSIS [None]
  - DISTURBANCE IN ATTENTION [None]
  - ERYTHEMA [None]
  - MEMORY IMPAIRMENT [None]
  - VASOSPASM [None]
  - INTERVERTEBRAL DISC PROTRUSION [None]
  - CEREBROVASCULAR ACCIDENT [None]
  - MIOSIS [None]
  - EYE PAIN [None]
